FAERS Safety Report 11518143 (Version 1)
Quarter: 2015Q3

REPORT INFORMATION
  Report Type: Spontaneous
  Country: JP (occurrence: JP)
  Receive Date: 20150917
  Receipt Date: 20150917
  Transmission Date: 20151125
  Serious: Yes (Hospitalization)
  Sender: FDA-Public Use
  Company Number: JP-BAYER-2015-414757

PATIENT
  Age: 88 Year
  Sex: Female

DRUGS (10)
  1. BAYASPIRIN [Suspect]
     Active Substance: ASPIRIN
     Dosage: UNK
     Route: 048
     Dates: start: 2015
  2. REZALTAS [Concomitant]
     Active Substance: AZELNIDIPINE\OLMESARTAN MEDOXOMIL
     Route: 048
  3. AMOBAN [Concomitant]
     Active Substance: ZOPICLONE
     Route: 048
  4. JUVELA N [Concomitant]
     Active Substance: TOCOPHERYL NICOTINATE, D-.ALPHA.
     Route: 048
  5. SELOKEN [Concomitant]
     Active Substance: METOPROLOL
     Route: 048
  6. FLUITRAN [Concomitant]
     Active Substance: TRICHLORMETHIAZIDE
     Route: 048
  7. ZYLORIC [Concomitant]
     Active Substance: ALLOPURINOL
     Route: 048
  8. BAYASPIRIN [Suspect]
     Active Substance: ASPIRIN
     Dosage: 100 MG, QD
     Route: 048
     Dates: start: 201310, end: 201504
  9. CARDENALIN [Concomitant]
     Active Substance: DOXAZOSIN MESYLATE
     Route: 048
  10. PURSENNID [Concomitant]
     Active Substance: SENNOSIDES A AND B
     Route: 048

REACTIONS (2)
  - Fall [Unknown]
  - Sputum discoloured [Unknown]

NARRATIVE: CASE EVENT DATE: 201504
